FAERS Safety Report 15590600 (Version 1)
Quarter: 2018Q4

REPORT INFORMATION
  Report Type: Spontaneous
  Country: CN (occurrence: CN)
  Receive Date: 20181106
  Receipt Date: 20181106
  Transmission Date: 20190205
  Serious: Yes (Other)
  Sender: FDA-Public Use
  Company Number: CN-SA-2018SA304184

PATIENT
  Age: 3 Year
  Sex: Female

DRUGS (4)
  1. SODIUM CHLORIDE. [Concomitant]
     Active Substance: SODIUM CHLORIDE
     Dosage: 400 ML, QD
     Route: 041
     Dates: start: 20180912, end: 20180914
  2. THYMOGLOBULIN [Suspect]
     Active Substance: LAPINE T-LYMPHOCYTE IMMUNE GLOBULIN
     Indication: APLASTIC ANAEMIA
     Dosage: 50 MG, QD
     Route: 041
     Dates: start: 20180912, end: 20180914
  3. GLUCOSE [Concomitant]
     Active Substance: DEXTROSE
     Dosage: 200 ML, QD
     Route: 041
     Dates: start: 20180912, end: 20180916
  4. METHYLPREDNISOLON [METHYLPREDNISOLONE SODIUM SUCCINATE] [Concomitant]
     Indication: HYPERSENSITIVITY
     Dosage: 50 MG, QD
     Route: 041
     Dates: start: 20180912, end: 20180916

REACTIONS (1)
  - Bradycardia [Recovering/Resolving]

NARRATIVE: CASE EVENT DATE: 20180913
